FAERS Safety Report 8932202 (Version 2)
Quarter: 2012Q4

REPORT INFORMATION
  Report Type: 
  Country: NO (occurrence: NO)
  Receive Date: 20121128
  Receipt Date: 20121219
  Transmission Date: 20130627
  Serious: Yes (Hospitalization, Other)
  Sender: FDA-Public Use
  Company Number: NO-PFIZER INC-2012295763

PATIENT
  Age: 72 Year
  Sex: Female

DRUGS (5)
  1. SUTENT [Suspect]
     Indication: KIDNEY CANCER
     Dosage: 50 mg, 1x/day
     Route: 048
     Dates: start: 20121102, end: 20121111
  2. MODURETIC [Concomitant]
     Dosage: 25 mg, 1x/day
  3. IMDUR [Concomitant]
     Dosage: 60 mg, 1x/day
  4. SOMAC [Concomitant]
     Dosage: 40 mg, 1x/day
  5. ALENDRONATE SODIUM [Concomitant]
     Indication: OSTEOPOROSIS
     Dosage: 70 mg, weekly

REACTIONS (7)
  - Pyelonephritis [Recovered/Resolved]
  - Renal failure [Recovered/Resolved with Sequelae]
  - Pain [Recovered/Resolved]
  - Nausea [Recovered/Resolved]
  - Vomiting [Recovered/Resolved]
  - Oropharyngeal plaque [Recovered/Resolved]
  - Thrombocytopenia [Recovered/Resolved]
